FAERS Safety Report 4340577-8 (Version None)
Quarter: 2004Q2

REPORT INFORMATION
  Report Type: 
  Country: None (occurrence: None)
  Receive Date: 20040416
  Receipt Date: 20040416
  Transmission Date: 20050107
  Serious: No
  Sender: FDA-Public Use
  Company Number: None

PATIENT
  Age: 66 Year
  Sex: Male

DRUGS (1)
  1. CEFOXITIN [Suspect]
     Indication: DIVERTICULITIS
     Dosage: Q6H IVPB
     Route: 042

REACTIONS (1)
  - DERMATITIS [None]
